FAERS Safety Report 14018749 (Version 3)
Quarter: 2017Q4

REPORT INFORMATION
  Report Type: Spontaneous
  Country: US (occurrence: US)
  Receive Date: 20170928
  Receipt Date: 20171116
  Transmission Date: 20180321
  Serious: No
  Sender: FDA-Public Use
  Company Number: US-PFIZER INC-2017415287

PATIENT
  Age: 59 Year
  Sex: Female

DRUGS (7)
  1. FOLIC ACID. [Concomitant]
     Active Substance: FOLIC ACID
     Indication: BLOOD COUNT ABNORMAL
     Dosage: 1MG TABLETS, ONE A DAY, BY MOUTH
     Route: 048
  2. ZOCOR [Concomitant]
     Active Substance: SIMVASTATIN
     Indication: BLOOD CHOLESTEROL ABNORMAL
     Dosage: 20MG TABLETS, ONCE A DAY, BY MOUTH
     Route: 048
  3. XELJANZ XR [Suspect]
     Active Substance: TOFACITINIB CITRATE
     Dosage: 11 MG, 2X/DAY
     Route: 048
  4. AMLODIPINE [Concomitant]
     Active Substance: AMLODIPINE BESYLATE
     Indication: BLOOD PRESSURE ABNORMAL
     Dosage: 10MG TABLETS, ONCE A DAY, BY MOUTH
     Route: 048
  5. XELJANZ XR [Suspect]
     Active Substance: TOFACITINIB CITRATE
     Indication: RHEUMATOID ARTHRITIS
     Dosage: 11 MG, 1X/DAY
     Route: 048
     Dates: start: 201706
  6. CARVIDOL [Concomitant]
     Indication: EXTRASYSTOLES
     Dosage: 25MG TABLET, ONCE A DAY, BY MOUTH
     Route: 048
  7. DYAZIDE [Concomitant]
     Active Substance: HYDROCHLOROTHIAZIDE\TRIAMTERENE
     Indication: SWELLING
     Dosage: UNK, 1X/DAY (25/37.5)
     Route: 048

REACTIONS (2)
  - Product use issue [Unknown]
  - Drug effect incomplete [Recovering/Resolving]
